FAERS Safety Report 23929199 (Version 1)
Quarter: 2024Q2

REPORT INFORMATION
  Report Type: Spontaneous
  Country: US (occurrence: US)
  Receive Date: 20240601
  Receipt Date: 20240601
  Transmission Date: 20240716
  Serious: Yes (Hospitalization, Other)
  Sender: FDA-Public Use
  Company Number: US-ABBVIE-5783504

PATIENT
  Sex: Female

DRUGS (1)
  1. LINZESS [Suspect]
     Active Substance: LINACLOTIDE
     Indication: Constipation
     Dosage: FORM STRENGTH: 72 MILLIGRAM
     Route: 048

REACTIONS (2)
  - Appendicitis [Recovered/Resolved]
  - Adhesiolysis [Unknown]

NARRATIVE: CASE EVENT DATE: 20240101
